FAERS Safety Report 8882001 (Version 1)
Quarter: 2012Q4

REPORT INFORMATION
  Report Type: 
  Country: CA (occurrence: CA)
  Receive Date: 20121102
  Receipt Date: 20121102
  Transmission Date: 20130627
  Serious: Yes (Other)
  Sender: FDA-Public Use
  Company Number: CA-PFIZER INC-2012267711

PATIENT
  Age: 61 Year
  Sex: Male

DRUGS (6)
  1. CELEBREX [Suspect]
     Indication: INFLAMMATION
     Dosage: UNK
     Dates: start: 20050130
  2. CELEBREX [Suspect]
     Dosage: less than 400 mg daily
  3. ASA [Concomitant]
     Dosage: UNK
  4. BISOPROLOL [Concomitant]
     Dosage: UNK
  5. FLOMAX [Concomitant]
     Dosage: UNK
  6. OXAZEPAM [Concomitant]
     Dosage: UNK

REACTIONS (2)
  - Embolic stroke [Recovering/Resolving]
  - Atrial fibrillation [Recovering/Resolving]
